FAERS Safety Report 16238351 (Version 2)
Quarter: 2019Q4

REPORT INFORMATION
  Report Type: Report from Study
  Country: CA (occurrence: CA)
  Receive Date: 20190425
  Receipt Date: 20191209
  Transmission Date: 20200122
  Serious: Yes (Death)
  Sender: FDA-Public Use
  Company Number: CA-JNJFOC-20190430685

PATIENT
  Age: 65 Year
  Sex: Male

DRUGS (1)
  1. SIMPONI [Suspect]
     Active Substance: GOLIMUMAB
     Indication: RHEUMATOID ARTHRITIS
     Route: 058
     Dates: start: 20180622, end: 20191126

REACTIONS (1)
  - Bladder cancer [Fatal]

NARRATIVE: CASE EVENT DATE: 20190407
